FAERS Safety Report 9719912 (Version 2)
Quarter: 2014Q1

REPORT INFORMATION
  Report Type: Spontaneous
  Country: JP (occurrence: JP)
  Receive Date: 20131128
  Receipt Date: 20140122
  Transmission Date: 20141002
  Serious: Yes (Other)
  Sender: FDA-Public Use
  Company Number: JP-JNJFOC-20131116432

PATIENT
  Age: 94 Year
  Sex: Female
  Weight: 40 kg

DRUGS (9)
  1. XARELTO [Suspect]
     Indication: CEREBROVASCULAR ACCIDENT PROPHYLAXIS
     Route: 048
     Dates: start: 20131029, end: 20131115
  2. XARELTO [Suspect]
     Indication: ATRIAL FIBRILLATION
     Route: 048
     Dates: start: 20131029, end: 20131115
  3. ARTIST [Concomitant]
     Indication: CARDIAC FAILURE
     Route: 048
  4. BAYASPIRIN [Concomitant]
     Indication: ANGINA PECTORIS
     Route: 048
  5. NU-LOTAN [Concomitant]
     Indication: CARDIAC FAILURE
     Route: 048
  6. NU-LOTAN [Concomitant]
     Indication: HYPERTENSION
     Route: 048
  7. LASIX [Concomitant]
     Indication: CARDIAC FAILURE
     Route: 048
  8. TAKEPRON [Concomitant]
     Indication: GASTRITIS
     Route: 048
  9. RHYTHMY [Concomitant]
     Indication: INSOMNIA
     Route: 048

REACTIONS (1)
  - Thrombocytopenia [Not Recovered/Not Resolved]
